FAERS Safety Report 18900984 (Version 2)
Quarter: 2021Q1

REPORT INFORMATION
  Report Type: Spontaneous
  Country: DK (occurrence: DK)
  Receive Date: 20210217
  Receipt Date: 20210301
  Transmission Date: 20210420
  Serious: Yes (Hospitalization)
  Sender: FDA-Public Use
  Company Number: DK-TEVA-2021-DK-1879355

PATIENT
  Age: 69 Year
  Sex: Male

DRUGS (1)
  1. ANAGRELIDE. [Suspect]
     Active Substance: ANAGRELIDE HYDROCHLORIDE
     Indication: ESSENTIAL THROMBOCYTHAEMIA
     Route: 065

REACTIONS (2)
  - Community acquired infection [Recovering/Resolving]
  - Meningitis pneumococcal [Recovering/Resolving]
